FAERS Safety Report 22054279 (Version 1)
Quarter: 2023Q1

REPORT INFORMATION
  Report Type: Report from Study
  Country: US (occurrence: US)
  Receive Date: 20230302
  Receipt Date: 20230302
  Transmission Date: 20230418
  Serious: Yes (Other)
  Sender: FDA-Public Use
  Company Number: US-MYLANLABS-2023M1021432

PATIENT
  Age: 56 Year
  Sex: Female
  Weight: 44 kg

DRUGS (13)
  1. GABAPENTIN [Suspect]
     Active Substance: GABAPENTIN
     Indication: Infusion site pain
     Dosage: UNK
     Route: 065
  2. REMODULIN [Suspect]
     Active Substance: TREPROSTINIL
     Indication: Pulmonary arterial hypertension
     Dosage: 0.043 MICROGRAM/KILOGRAM
     Route: 058
  3. REMODULIN [Suspect]
     Active Substance: TREPROSTINIL
     Dosage: 0.046 MICROGRAM/KILOGRAM
     Route: 058
  4. REMODULIN [Suspect]
     Active Substance: TREPROSTINIL
     Dosage: UNK (DOSE INCREASED)
     Route: 058
     Dates: start: 20230107
  5. REMODULIN [Suspect]
     Active Substance: TREPROSTINIL
     Dosage: 0.049 MICROGRAM/KILOGRAM (START DATE: JAN 2023)
     Route: 058
  6. REMODULIN [Suspect]
     Active Substance: TREPROSTINIL
     Dosage: UNK
     Route: 058
     Dates: start: 20210908
  7. POTASSIUM [Suspect]
     Active Substance: POTASSIUM
     Indication: Product used for unknown indication
     Dosage: UNK
     Route: 065
  8. VANCOMYCIN [Suspect]
     Active Substance: VANCOMYCIN
     Indication: Diarrhoea
     Dosage: UNK, START DATE: 2022
     Route: 065
     Dates: end: 202212
  9. CHLORPHENIRAMINE [Suspect]
     Active Substance: CHLORPHENIRAMINE
     Indication: Product used for unknown indication
     Dosage: UNK, START DATE: 2022
     Route: 065
     Dates: end: 202212
  10. DIAZEPAM [Suspect]
     Active Substance: DIAZEPAM
     Indication: Product used for unknown indication
     Dosage: UNK
     Route: 065
  11. IBUPROFEN [Suspect]
     Active Substance: IBUPROFEN
     Indication: Infusion site pain
     Dosage: UNK
     Route: 065
  12. PEPCID [Suspect]
     Active Substance: FAMOTIDINE
     Indication: Product used for unknown indication
     Dosage: UNK
     Route: 065
  13. OPSUMIT [Concomitant]
     Active Substance: MACITENTAN
     Dosage: UNK
     Route: 065

REACTIONS (27)
  - Clostridium difficile infection [Not Recovered/Not Resolved]
  - Limb discomfort [Unknown]
  - Nerve compression [Unknown]
  - Decreased appetite [Unknown]
  - Chest discomfort [Recovering/Resolving]
  - Illness [Recovering/Resolving]
  - Throat tightness [Recovering/Resolving]
  - Feeling hot [Unknown]
  - Weight decreased [Unknown]
  - Flushing [Unknown]
  - Retching [Unknown]
  - Neck pain [Unknown]
  - Grip strength decreased [Unknown]
  - Fine motor skill dysfunction [Unknown]
  - Pain in extremity [Unknown]
  - Diarrhoea [Not Recovered/Not Resolved]
  - Fatigue [Unknown]
  - Cough [Unknown]
  - Dyspnoea [Recovered/Resolved]
  - Dizziness [Unknown]
  - Dry mouth [Not Recovered/Not Resolved]
  - Asthenia [Unknown]
  - Somnolence [Unknown]
  - Feeling abnormal [Not Recovered/Not Resolved]
  - Hyperhidrosis [Unknown]
  - Infection [Recovering/Resolving]
  - Vomiting [Unknown]

NARRATIVE: CASE EVENT DATE: 20221228
